FAERS Safety Report 6348758-9 (Version None)
Quarter: 2009Q3

REPORT INFORMATION
  Report Type: 
  Country: None (occurrence: None)
  Receive Date: 20090911
  Receipt Date: 20090901
  Transmission Date: 20100115
  Serious: Yes (Life-Threatening)
  Sender: FDA-Public Use
  Company Number: DE-JNJFOC-20090901713

PATIENT
  Age: 9 Decade
  Sex: Female

DRUGS (5)
  1. ABCIXIMAB [Suspect]
     Indication: MYOCARDIAL INFARCTION
     Route: 016
  2. ABCIXIMAB [Suspect]
     Route: 042
  3. HEPARIN [Concomitant]
     Indication: DRUG USE FOR UNKNOWN INDICATION
  4. CLOPIDOGREL [Concomitant]
     Indication: DRUG USE FOR UNKNOWN INDICATION
  5. ASPIRIN [Concomitant]
     Indication: DRUG USE FOR UNKNOWN INDICATION

REACTIONS (3)
  - HAEMORRHAGE [None]
  - INCORRECT ROUTE OF DRUG ADMINISTRATION [None]
  - SHOCK HAEMORRHAGIC [None]
